FAERS Safety Report 9224327 (Version 2)
Quarter: 2013Q2

REPORT INFORMATION
  Report Type: Spontaneous
  Country: CO (occurrence: CO)
  Receive Date: 20130411
  Receipt Date: 20130415
  Transmission Date: 20140414
  Serious: Yes (Hospitalization)
  Sender: FDA-Public Use
  Company Number: PHHY2013CO033603

PATIENT
  Age: 51 Year
  Sex: Female

DRUGS (1)
  1. GLIVEC [Suspect]
     Indication: CHRONIC MYELOID LEUKAEMIA
     Dosage: 400 MG
     Route: 048
     Dates: start: 20120907, end: 20130404

REACTIONS (3)
  - Feeling hot [Recovered/Resolved]
  - Hypertension [Recovered/Resolved]
  - Headache [Recovered/Resolved]
